FAERS Safety Report 8683805 (Version 2)
Quarter: 2013Q2

REPORT INFORMATION
  Report Type: Spontaneous
  Country: US (occurrence: None)
  Receive Date: 20120411
  Receipt Date: 20120713
  Transmission Date: 20140414
  Serious: No
  Sender: FDA-Public Use
  Company Number: PHEH2012US005874

PATIENT
  Age: 10 Year
  Sex: Male

DRUGS (1)
  1. ILARIS [Suspect]
     Indication: MUCKLE-WELLS SYNDROME
     Dosage: 50 MG, EVERY 8 WEEKS, SUBCUTANEOUS
     Route: 058
     Dates: start: 20100310

REACTIONS (5)
  - RASH [None]
  - PAIN OF SKIN [None]
  - PRURITUS [None]
  - Muckle-Wells syndrome [None]
  - Condition aggravated [None]
